FAERS Safety Report 19375713 (Version 1)
Quarter: 2021Q2

REPORT INFORMATION
  Report Type: Spontaneous
  Country: GB (occurrence: GB)
  Receive Date: 20210604
  Receipt Date: 20210604
  Transmission Date: 20210717
  Serious: Yes (Other)
  Sender: FDA-Public Use
  Company Number: GB-TEVA-2021-GB-1918570

PATIENT
  Age: 77 Year
  Sex: Female
  Weight: 73 kg

DRUGS (7)
  1. AMLODIPINE [Suspect]
     Active Substance: AMLODIPINE BESYLATE
     Dosage: 5 MILLIGRAM DAILY;
     Route: 065
     Dates: start: 20201002
  2. CANDESARTAN. [Concomitant]
     Active Substance: CANDESARTAN
     Dosage: 1 DOSAGE FORMS DAILY;
     Dates: start: 20210517
  3. SALBUTAMOL [Concomitant]
     Active Substance: ALBUTEROL
     Dosage: UNIT DOSE : 2 DOSAGE FORMS
     Dates: start: 20170918
  4. BRALTUS [Concomitant]
     Active Substance: TIOTROPIUM BROMIDE
     Dosage: 1 DOSAGE FORMS DAILY;
     Route: 055
     Dates: start: 20180320
  5. COMBISAL [Concomitant]
     Dosage: 4 DOSAGE FORMS DAILY; UNIT DOSE : 2 DOSAGE FORMS
     Route: 055
     Dates: start: 20190304
  6. EZETIMIBE. [Concomitant]
     Active Substance: EZETIMIBE
     Dosage: 1 DOSAGE FORMS DAILY;
     Dates: start: 20191101
  7. ERYTHROMYCIN. [Concomitant]
     Active Substance: ERYTHROMYCIN
     Dosage: 4 DOSAGE FORMS DAILY; UNIT DOSE : 1 DOSAGE FORMS
     Dates: start: 20210427, end: 20210504

REACTIONS (1)
  - Joint swelling [Unknown]

NARRATIVE: CASE EVENT DATE: 20210524
